FAERS Safety Report 6209396-1 (Version None)
Quarter: 2009Q2

REPORT INFORMATION
  Report Type: 
  Country: None (occurrence: None)
  Receive Date: 20090529
  Receipt Date: 20090521
  Transmission Date: 20091009
  Serious: Yes (Hospitalization, Disabling, Other)
  Sender: FDA-Public Use
  Company Number: GB-ABBOTT-09P-167-0575984-00

PATIENT
  Age: 65 Year
  Sex: Female

DRUGS (2)
  1. ERYTHROMYCIN [Suspect]
     Indication: INFECTION
     Route: 048
     Dates: start: 20090501, end: 20090506
  2. BENDROFLUAZIDE [Concomitant]
     Indication: HYPERTENSION
     Dates: start: 20040101

REACTIONS (2)
  - DEAFNESS [None]
  - TINNITUS [None]
